FAERS Safety Report 11132386 (Version 1)
Quarter: 2015Q2

REPORT INFORMATION
  Report Type: Report from Study
  Country: PH (occurrence: PH)
  Receive Date: 20150522
  Receipt Date: 20150522
  Transmission Date: 20150821
  Serious: Yes (Hospitalization)
  Sender: FDA-Public Use
  Company Number: PH-OTSUKA-2015_001401

PATIENT
  Sex: Male
  Weight: 75 kg

DRUGS (2)
  1. ARIPIPRAZOLE. [Suspect]
     Active Substance: ARIPIPRAZOLE
     Indication: SCHIZOPHRENIA
     Dosage: 10 MG, UNK
     Route: 030
     Dates: start: 20150328
  2. CLOZAPINE. [Concomitant]
     Active Substance: CLOZAPINE
     Indication: PSYCHOTIC DISORDER
     Dosage: 1-2 TABLET
     Route: 048
     Dates: start: 20140122

REACTIONS (1)
  - Mood altered [Recovered/Resolved with Sequelae]
